FAERS Safety Report 21260330 (Version 5)
Quarter: 2022Q3

REPORT INFORMATION
  Report Type: Spontaneous
  Country: RU (occurrence: RU)
  Receive Date: 20220826
  Receipt Date: 20220914
  Transmission Date: 20221027
  Serious: Yes (Life-Threatening, Disabling, Other)
  Sender: FDA-Public Use
  Company Number: RU-ORGANON-O2208RUS002086

PATIENT
  Sex: Female

DRUGS (29)
  1. DIPROSPAN [Suspect]
     Active Substance: BETAMETHASONE DIPROPIONATE\BETAMETHASONE SODIUM PHOSPHATE
     Indication: Cyst
     Dosage: 0.5 MILLIGRAM, QOW (1 TIME IN 2 WEEKS)
     Dates: start: 202103
  2. DIPROSPAN [Suspect]
     Active Substance: BETAMETHASONE DIPROPIONATE\BETAMETHASONE SODIUM PHOSPHATE
     Indication: Keloid scar
     Dosage: 0.15 ML
     Dates: start: 20200718
  3. DIPROSPAN [Suspect]
     Active Substance: BETAMETHASONE DIPROPIONATE\BETAMETHASONE SODIUM PHOSPHATE
     Dosage: 0.25 ML
     Dates: start: 20200725
  4. DIPROSPAN [Suspect]
     Active Substance: BETAMETHASONE DIPROPIONATE\BETAMETHASONE SODIUM PHOSPHATE
     Dosage: 0.25 ML
     Dates: start: 20200801
  5. DIPROSPAN [Suspect]
     Active Substance: BETAMETHASONE DIPROPIONATE\BETAMETHASONE SODIUM PHOSPHATE
     Dosage: 0.15 ML
     Dates: start: 20200912
  6. DIPROSPAN [Suspect]
     Active Substance: BETAMETHASONE DIPROPIONATE\BETAMETHASONE SODIUM PHOSPHATE
     Dosage: 0.1 ML
     Dates: start: 20201010
  7. DIPROSPAN [Suspect]
     Active Substance: BETAMETHASONE DIPROPIONATE\BETAMETHASONE SODIUM PHOSPHATE
     Dosage: 1.0 ML
     Dates: start: 20201107
  8. DIPROSPAN [Suspect]
     Active Substance: BETAMETHASONE DIPROPIONATE\BETAMETHASONE SODIUM PHOSPHATE
     Dosage: 0.25 ML
     Dates: start: 20201121
  9. DIPROSPAN [Suspect]
     Active Substance: BETAMETHASONE DIPROPIONATE\BETAMETHASONE SODIUM PHOSPHATE
     Dosage: 0.5 ML
     Dates: start: 20201219
  10. DIPROSPAN [Suspect]
     Active Substance: BETAMETHASONE DIPROPIONATE\BETAMETHASONE SODIUM PHOSPHATE
     Dosage: 0.5 ML
     Dates: start: 20210102
  11. DIPROSPAN [Suspect]
     Active Substance: BETAMETHASONE DIPROPIONATE\BETAMETHASONE SODIUM PHOSPHATE
     Dosage: 0.5 ML
     Dates: start: 20210306
  12. DIPROSPAN [Suspect]
     Active Substance: BETAMETHASONE DIPROPIONATE\BETAMETHASONE SODIUM PHOSPHATE
     Dosage: 0.5 ML
     Dates: start: 20210403
  13. DIPROSPAN [Suspect]
     Active Substance: BETAMETHASONE DIPROPIONATE\BETAMETHASONE SODIUM PHOSPHATE
     Dosage: 1.0 ML
     Dates: start: 20210417
  14. DIPROSPAN [Suspect]
     Active Substance: BETAMETHASONE DIPROPIONATE\BETAMETHASONE SODIUM PHOSPHATE
     Dosage: 1.5 ML
     Dates: start: 20210424
  15. DIPROSPAN [Suspect]
     Active Substance: BETAMETHASONE DIPROPIONATE\BETAMETHASONE SODIUM PHOSPHATE
     Dosage: 1.5 ML
     Dates: start: 20210516
  16. DIPROSPAN [Suspect]
     Active Substance: BETAMETHASONE DIPROPIONATE\BETAMETHASONE SODIUM PHOSPHATE
     Dosage: 1.5 ML
     Dates: start: 20210605
  17. DIPROSPAN [Suspect]
     Active Substance: BETAMETHASONE DIPROPIONATE\BETAMETHASONE SODIUM PHOSPHATE
     Dosage: 1.0 ML
     Dates: start: 20210625
  18. DIPROSPAN [Suspect]
     Active Substance: BETAMETHASONE DIPROPIONATE\BETAMETHASONE SODIUM PHOSPHATE
     Dosage: 1.5 ML
     Dates: start: 20210710
  19. DIPROSPAN [Suspect]
     Active Substance: BETAMETHASONE DIPROPIONATE\BETAMETHASONE SODIUM PHOSPHATE
     Dosage: 2.0 ML
     Dates: start: 20211016
  20. DIPROSPAN [Suspect]
     Active Substance: BETAMETHASONE DIPROPIONATE\BETAMETHASONE SODIUM PHOSPHATE
     Dosage: 2.0 ML
     Dates: start: 20211016
  21. DIPROSPAN [Suspect]
     Active Substance: BETAMETHASONE DIPROPIONATE\BETAMETHASONE SODIUM PHOSPHATE
     Dosage: 1.5 ML
     Dates: start: 20211030
  22. DIPROSPAN [Suspect]
     Active Substance: BETAMETHASONE DIPROPIONATE\BETAMETHASONE SODIUM PHOSPHATE
     Dosage: 1.5 ML
     Dates: start: 20211030
  23. DIPROSPAN [Suspect]
     Active Substance: BETAMETHASONE DIPROPIONATE\BETAMETHASONE SODIUM PHOSPHATE
     Dosage: 1.5 ML
     Dates: start: 20211113
  24. DIPROSPAN [Suspect]
     Active Substance: BETAMETHASONE DIPROPIONATE\BETAMETHASONE SODIUM PHOSPHATE
     Dosage: 1.5 ML
     Dates: start: 20211127
  25. DIPROSPAN [Suspect]
     Active Substance: BETAMETHASONE DIPROPIONATE\BETAMETHASONE SODIUM PHOSPHATE
     Dosage: 1.5 ML
     Dates: start: 20211211
  26. DIPROSPAN [Suspect]
     Active Substance: BETAMETHASONE DIPROPIONATE\BETAMETHASONE SODIUM PHOSPHATE
     Dosage: 2.0 ML
     Dates: start: 20211225
  27. DIPROSPAN [Suspect]
     Active Substance: BETAMETHASONE DIPROPIONATE\BETAMETHASONE SODIUM PHOSPHATE
     Dosage: 2.0 ML
     Dates: start: 20220108
  28. DIPROSPAN [Suspect]
     Active Substance: BETAMETHASONE DIPROPIONATE\BETAMETHASONE SODIUM PHOSPHATE
     Dosage: 2.0 ML
     Dates: start: 20220122
  29. DIPROSPAN [Suspect]
     Active Substance: BETAMETHASONE DIPROPIONATE\BETAMETHASONE SODIUM PHOSPHATE
     Dosage: 2.0 ML
     Dates: start: 20220205, end: 20220205

REACTIONS (39)
  - Anaphylactic shock [Recovered/Resolved]
  - Hypertensive crisis [Recovered/Resolved]
  - Near death experience [Recovered/Resolved]
  - General physical health deterioration [Not Recovered/Not Resolved]
  - Angina pectoris [Recovering/Resolving]
  - Blindness [Unknown]
  - Cyst [Recovered/Resolved]
  - Amenorrhoea [Recovered/Resolved]
  - Menstrual disorder [Unknown]
  - Lethargy [Unknown]
  - Fatigue [Unknown]
  - Asthenia [Unknown]
  - Oedema peripheral [Recovered/Resolved]
  - Hypoaesthesia [Recovered/Resolved]
  - Bone pain [Not Recovered/Not Resolved]
  - Eye pain [Recovering/Resolving]
  - Adverse drug reaction [Unknown]
  - Lymphatic disorder [Unknown]
  - Drug ineffective [Unknown]
  - Headache [Recovering/Resolving]
  - Adverse event [Unknown]
  - Muscular weakness [Unknown]
  - Palpitations [Recovering/Resolving]
  - Nausea [Unknown]
  - Immune system disorder [Unknown]
  - Hepatic pain [Recovered/Resolved]
  - Pain [Unknown]
  - Alopecia [Unknown]
  - Female reproductive tract disorder [Recovering/Resolving]
  - Thyroid disorder [Recovering/Resolving]
  - Gastrointestinal pain [Not Recovered/Not Resolved]
  - Arthralgia [Unknown]
  - Lymph node pain [Unknown]
  - Swelling face [Recovered/Resolved]
  - Peripheral swelling [Recovered/Resolved]
  - Peripheral swelling [Not Recovered/Not Resolved]
  - Initial insomnia [Not Recovered/Not Resolved]
  - Feeling abnormal [Not Recovered/Not Resolved]
  - Multi-organ disorder [Unknown]

NARRATIVE: CASE EVENT DATE: 20220101
